FAERS Safety Report 7810499-6 (Version None)
Quarter: 2011Q4

REPORT INFORMATION
  Report Type: 
  Country: None (occurrence: None)
  Receive Date: 20111012
  Receipt Date: 20110930
  Transmission Date: 20120403
  Serious: Yes (Hospitalization)
  Sender: FDA-Public Use
  Company Number: US-ELI_LILLY_AND_COMPANY-US201109008832

PATIENT
  Sex: Female
  Weight: 43 kg

DRUGS (2)
  1. OTHER PHARMA COMPANY INV DRUG [Suspect]
     Indication: LUNG NEOPLASM MALIGNANT
     Dosage: 100 MG, DAY 2 TO 19
     Route: 048
  2. PEMETREXED [Suspect]
     Indication: LUNG NEOPLASM MALIGNANT
     Dosage: 735,  EVERY 3 WEEKS
     Route: 042

REACTIONS (4)
  - OEDEMA PERIPHERAL [None]
  - CELLULITIS [None]
  - DECREASED APPETITE [None]
  - DYSPHAGIA [None]
